FAERS Safety Report 7077393-2 (Version None)
Quarter: 2010Q4

REPORT INFORMATION
  Report Type: 
  Country: None (occurrence: None)
  Receive Date: 20101101
  Receipt Date: 20101026
  Transmission Date: 20110411
  Serious: Yes (Hospitalization, Disabling)
  Sender: FDA-Public Use
  Company Number: US-MERCK-1010USA02313

PATIENT
  Age: 59 Year
  Sex: Female

DRUGS (5)
  1. JANUVIA [Suspect]
     Indication: GLUCOSE TOLERANCE IMPAIRED
     Route: 048
     Dates: start: 20100819, end: 20101001
  2. JANUVIA [Suspect]
     Indication: TYPE 2 DIABETES MELLITUS
     Route: 048
     Dates: start: 20100819, end: 20101001
  3. VITAMINS (UNSPECIFIED) [Concomitant]
     Route: 065
  4. ALTACE [Concomitant]
     Route: 065
  5. ATENOLOL [Concomitant]
     Route: 065

REACTIONS (2)
  - ACUTE LEUKAEMIA [None]
  - OFF LABEL USE [None]
